FAERS Safety Report 24839463 (Version 1)
Quarter: 2025Q1

REPORT INFORMATION
  Report Type: Spontaneous
  Country: PL (occurrence: PL)
  Receive Date: 20250114
  Receipt Date: 20250114
  Transmission Date: 20250409
  Serious: Yes (Other)
  Sender: ABBVIE
  Company Number: PL-ABBVIE-6081785

PATIENT
  Age: 70 Year
  Sex: Male

DRUGS (1)
  1. SILODOSIN [Suspect]
     Active Substance: SILODOSIN
     Indication: Product used for unknown indication
     Route: 048

REACTIONS (3)
  - Urinary retention [Unknown]
  - Dysuria [Unknown]
  - Dysuria [Unknown]

NARRATIVE: CASE EVENT DATE: 20241201
